FAERS Safety Report 18884165 (Version 2)
Quarter: 2021Q1

REPORT INFORMATION
  Report Type: Report from Study
  Country: DE (occurrence: DE)
  Receive Date: 20210211
  Receipt Date: 20210302
  Transmission Date: 20210420
  Serious: Yes (Hospitalization, Other)
  Sender: FDA-Public Use
  Company Number: DE-BRISTOL-MYERS SQUIBB COMPANY-BMS-2019-069418

PATIENT
  Age: 56 Year
  Sex: Male

DRUGS (2)
  1. NIVOLUMAB [Suspect]
     Active Substance: NIVOLUMAB
     Indication: MALIGNANT MELANOMA
     Dosage: 105 MILLIGRAM, Q3WK
     Route: 042
     Dates: start: 20190604, end: 20190627
  2. IPILIMUMAB [Suspect]
     Active Substance: IPILIMUMAB
     Indication: MALIGNANT MELANOMA
     Dosage: 315 MILLIGRAM, Q3WK
     Route: 065
     Dates: start: 20190604, end: 20190627

REACTIONS (8)
  - General physical health deterioration [Not Recovered/Not Resolved]
  - Autoimmune colitis [Recovered/Resolved]
  - Metastases to abdominal cavity [Unknown]
  - Haemorrhoids [Unknown]
  - Hypernatraemia [Not Recovered/Not Resolved]
  - Hypothalamo-pituitary disorder [Unknown]
  - Headache [Not Recovered/Not Resolved]
  - Adrenocorticotropic hormone deficiency [Unknown]

NARRATIVE: CASE EVENT DATE: 20190710
